FAERS Safety Report 8519619-1 (Version None)
Quarter: 2012Q3

REPORT INFORMATION
  Report Type: 
  Country: None (occurrence: None)
  Receive Date: 20120718
  Receipt Date: 20120716
  Transmission Date: 20120928
  Serious: Yes (Death, Other)
  Sender: FDA-Public Use
  Company Number: US-ABBOTT-12P-163-0955988-00

PATIENT
  Sex: Male

DRUGS (6)
  1. ALLOPURINOL [Suspect]
     Indication: TUMOUR LYSIS SYNDROME
     Dates: start: 20110101, end: 20110701
  2. ALLOPURINOL [Suspect]
     Indication: PROPHYLAXIS
  3. HUMIRA [Suspect]
     Indication: PSORIASIS
     Route: 058
     Dates: end: 20110601
  4. CYCLOSPORINE [Suspect]
     Indication: PSORIASIS
     Dates: start: 20110601, end: 20110701
  5. INFLIXIMAB [Suspect]
     Indication: PSORIASIS
     Dates: start: 20110601, end: 20110701
  6. SORIATANE [Suspect]
     Indication: PSORIASIS
     Dates: start: 20110601, end: 20110701

REACTIONS (3)
  - TOXIC EPIDERMAL NECROLYSIS [None]
  - B-CELL LYMPHOMA [None]
  - DRUG INEFFECTIVE [None]
